FAERS Safety Report 9787143 (Version 1)
Quarter: 2013Q4

REPORT INFORMATION
  Report Type: Spontaneous
  Country: US (occurrence: US)
  Receive Date: 20131228
  Receipt Date: 20131228
  Transmission Date: 20140711
  Serious: No
  Sender: FDA-Public Use
  Company Number: US-009507513-1312USA009689

PATIENT
  Sex: Male

DRUGS (1)
  1. A AND D FIRST AID [Suspect]
     Indication: EPISTAXIS
     Dosage: UNK, UNKNOWN
     Route: 061

REACTIONS (2)
  - Drug ineffective for unapproved indication [Unknown]
  - Off label use [Unknown]
